FAERS Safety Report 7058588-0 (Version None)
Quarter: 2010Q4

REPORT INFORMATION
  Report Type: 
  Country: None (occurrence: None)
  Receive Date: 20101022
  Receipt Date: 20101019
  Transmission Date: 20110411
  Serious: Yes (Disabling)
  Sender: FDA-Public Use
  Company Number: A0887600A

PATIENT
  Sex: Female

DRUGS (3)
  1. ADVAIR DISKUS 100/50 [Suspect]
     Indication: ASTHMA
     Route: 055
  2. CLARITIN [Concomitant]
  3. ALBUTEROL [Concomitant]

REACTIONS (5)
  - ASTHMA [None]
  - CANDIDIASIS [None]
  - DECREASED APPETITE [None]
  - DYSPHONIA [None]
  - WEIGHT DECREASED [None]
